FAERS Safety Report 10146940 (Version 1)
Quarter: 2014Q2

REPORT INFORMATION
  Report Type: Spontaneous
  Country: US (occurrence: US)
  Receive Date: 20140501
  Receipt Date: 20140501
  Transmission Date: 20141212
  Serious: Yes (Hospitalization)
  Sender: FDA-Public Use
  Company Number: US-GLAXOSMITHKLINE-A1070611A

PATIENT
  Age: 62 Year
  Sex: Female

DRUGS (6)
  1. ADVAIR HFA [Suspect]
     Indication: ASTHMA
     Dosage: 1PUFF TWICE PER DAY
     Route: 055
     Dates: start: 20080915
  2. VENTOLIN [Suspect]
     Indication: ASTHMA
     Dosage: 2PUFF AS REQUIRED
     Route: 055
     Dates: start: 2005
  3. ASPIRIN [Concomitant]
  4. PRINIVIL [Concomitant]
  5. RISPERDAL [Concomitant]
  6. HCTZ [Concomitant]

REACTIONS (5)
  - Acute myocardial infarction [Unknown]
  - Stent placement [Recovering/Resolving]
  - Nocturnal dyspnoea [Recovering/Resolving]
  - Drug administration error [Recovering/Resolving]
  - Dyspnoea [Recovering/Resolving]
